FAERS Safety Report 5654578-0 (Version None)
Quarter: 2008Q1

REPORT INFORMATION
  Report Type: 
  Country: None (occurrence: None)
  Receive Date: 20080307
  Receipt Date: 20080303
  Transmission Date: 20080703
  Serious: Yes (Hospitalization)
  Sender: FDA-Public Use
  Company Number: JP-BRISTOL-MYERS SQUIBB COMPANY-14101166

PATIENT
  Age: 27 Year
  Sex: Male

DRUGS (3)
  1. VEPESID [Suspect]
     Indication: PSEUDOSARCOMA
     Route: 041
  2. ONCOVIN [Concomitant]
     Route: 042
  3. IFOMIDE [Concomitant]
     Route: 042

REACTIONS (1)
  - TUMOUR HAEMORRHAGE [None]
